FAERS Safety Report 6252761-7 (Version None)
Quarter: 2009Q2

REPORT INFORMATION
  Report Type: 
  Country: None (occurrence: None)
  Receive Date: 20090629
  Receipt Date: 20090623
  Transmission Date: 20091009
  Serious: Yes (Hospitalization)
  Sender: FDA-Public Use
  Company Number: 2008AL004506

PATIENT
  Age: 71 Year
  Sex: Male
  Weight: 74.8435 kg

DRUGS (2)
  1. DIGOXIN [Suspect]
     Indication: CARDIAC DISORDER
     Dosage: 0.25MG, PO
     Route: 048
     Dates: end: 20070303
  2. TYLENOL (CAPLET) [Concomitant]

REACTIONS (7)
  - ANGINA PECTORIS [None]
  - CARDIAC FLUTTER [None]
  - DIZZINESS [None]
  - EATING DISORDER [None]
  - GASTRIC DISORDER [None]
  - SOMNOLENCE [None]
  - VOMITING [None]
